FAERS Safety Report 7557555-8 (Version None)
Quarter: 2011Q2

REPORT INFORMATION
  Report Type: 
  Country: None (occurrence: None)
  Receive Date: 20110610
  Receipt Date: 20110528
  Transmission Date: 20111010
  Serious: Yes (Other)
  Sender: FDA-Public Use
  Company Number: 2011AP001097

PATIENT
  Age: 76 Year
  Sex: Female

DRUGS (2)
  1. MIDODRINE HYDROCHLORIDE [Suspect]
     Indication: ORTHOSTATIC HYPOTENSION
  2. FLUDROCORTISONE ACETATE [Concomitant]

REACTIONS (1)
  - HALLUCINATION, VISUAL [None]
